FAERS Safety Report 20240023 (Version 1)
Quarter: 2021Q4

REPORT INFORMATION
  Report Type: Spontaneous
  Country: US (occurrence: US)
  Receive Date: 20211228
  Receipt Date: 20211228
  Transmission Date: 20220304
  Serious: Yes (Other)
  Sender: FDA-Public Use
  Company Number: US-NOVARTISPH-NVSC2021US295920

PATIENT
  Age: 54 Year
  Sex: Male

DRUGS (1)
  1. DABRAFENIB [Suspect]
     Active Substance: DABRAFENIB
     Indication: Erdheim-Chester disease
     Dosage: 150 MG, QD
     Route: 065

REACTIONS (2)
  - Pancreatitis acute [Recovered/Resolved]
  - Product use in unapproved indication [Unknown]
